FAERS Safety Report 5719718-3 (Version None)
Quarter: 2008Q2

REPORT INFORMATION
  Report Type: 
  Country: None (occurrence: None)
  Receive Date: 20080428
  Receipt Date: 20070516
  Transmission Date: 20081010
  Serious: No
  Sender: FDA-Public Use
  Company Number: A0651804A

PATIENT
  Sex: Female

DRUGS (1)
  1. ZOFRAN [Suspect]

REACTIONS (1)
  - THERAPEUTIC RESPONSE UNEXPECTED [None]
